FAERS Safety Report 4442959-2 (Version None)
Quarter: 2004Q3

REPORT INFORMATION
  Report Type: 
  Country: None (occurrence: None)
  Receive Date: 20040907
  Receipt Date: 20040907
  Transmission Date: 20050211
  Serious: Yes (Other)
  Sender: FDA-Public Use
  Company Number: None

PATIENT
  Age: 59 Year
  Sex: Male
  Weight: 83.9154 kg

DRUGS (1)
  1. 1A0694 - 50MG NITROGLYCERIN IN 5% DEXTROSE INJECTION, 250ML [Suspect]
     Indication: CATHETERISATION CARDIAC
     Dosage: IV
     Route: 042

REACTIONS (2)
  - DRUG INEFFECTIVE [None]
  - PHARMACEUTICAL PRODUCT COMPLAINT [None]
